FAERS Safety Report 9268131 (Version 1)
Quarter: 2013Q2

REPORT INFORMATION
  Report Type: Spontaneous
  Country: US (occurrence: US)
  Receive Date: 20130502
  Receipt Date: 20130502
  Transmission Date: 20140414
  Serious: Yes (Hospitalization)
  Sender: FDA-Public Use
  Company Number: US-ALEXION-A201201645

PATIENT
  Age: 19 Year
  Sex: Female
  Weight: 55.78 kg

DRUGS (6)
  1. SOLIRIS 300MG [Suspect]
     Indication: PAROXYSMAL NOCTURNAL HAEMOGLOBINURIA
     Dosage: 600 MG, QW
     Route: 042
     Dates: start: 20090929, end: 20091023
  2. ZANTAC [Concomitant]
     Indication: GASTROOESOPHAGEAL REFLUX DISEASE
     Dosage: 150 MG, BID
     Route: 048
  3. ORAL CONTRACEPTIVE NOS [Concomitant]
     Indication: CONTRACEPTION
     Dosage: 1 DF, QD
     Route: 048
  4. NORCO [Concomitant]
     Indication: ABDOMINAL PAIN
     Dosage: 10 MG HYDROCOCODE/325 MG ACETOMINOPHEN Q4-6H PRN
     Route: 048
  5. EXJADE [Concomitant]
     Indication: IRON OVERLOAD
     Dosage: 1250 MG, QD
     Route: 048
  6. NYSTATIN [Concomitant]
     Indication: CANDIDA INFECTION
     Dosage: SWISH AND SWALLOW
     Route: 048

REACTIONS (5)
  - Liver abscess [Recovered/Resolved]
  - Aplastic anaemia [Recovered/Resolved]
  - Condition aggravated [Recovered/Resolved]
  - Abdominal pain [Recovered/Resolved]
  - Constipation [Recovered/Resolved]
